FAERS Safety Report 10140037 (Version 2)
Quarter: 2014Q2

REPORT INFORMATION
  Report Type: Spontaneous
  Country: US (occurrence: US)
  Receive Date: 20140429
  Receipt Date: 20140429
  Transmission Date: 20141212
  Serious: No
  Sender: FDA-Public Use
  Company Number: US-PFIZER INC-2013105515

PATIENT
  Age: 79 Year
  Sex: Male

DRUGS (20)
  1. LYRICA [Suspect]
     Indication: FIBROMYALGIA
     Dosage: 75 MG, 1X/DAY (4 CAPSULE)
     Route: 048
  2. LYRICA [Suspect]
     Indication: MYALGIA
  3. LYRICA [Suspect]
     Indication: OSTEOARTHRITIS
  4. LYRICA [Suspect]
     Indication: PAIN
  5. BRIMONIDINE [Concomitant]
     Dosage: UNK
  6. DORZOLAMIDE [Concomitant]
     Dosage: UNK
  7. CALCIUM W/MAGNESIUM [Concomitant]
     Dosage: UNK
  8. IRON [Concomitant]
     Dosage: UNK
  9. CHONDROITIN/GLUCOSAMINE [Concomitant]
     Dosage: UNK
  10. SYNTHROID [Concomitant]
     Dosage: UNK
  11. MELATONIN [Concomitant]
     Dosage: UNK
  12. PERCOCET [Concomitant]
     Dosage: UNK
  13. SULINDAC [Concomitant]
     Dosage: UNK
  14. ZOLPIDEM [Concomitant]
     Dosage: UNK
  15. OMEPRAZOLE [Concomitant]
     Dosage: UNK
  16. FISH OIL [Concomitant]
     Dosage: UNK
  17. VITAMIN D3 [Concomitant]
     Dosage: UNK
  18. TRAVOPROST [Concomitant]
     Dosage: UNK
  19. FLAXSEED OIL [Concomitant]
     Dosage: UNK
  20. LEVOTHYROXINE [Concomitant]
     Dosage: UNK

REACTIONS (1)
  - Off label use [Unknown]
